FAERS Safety Report 6877172-2 (Version None)
Quarter: 2010Q3

REPORT INFORMATION
  Report Type: 
  Country: None (occurrence: None)
  Receive Date: 20100727
  Receipt Date: 20100727
  Transmission Date: 20110219
  Serious: Yes (Other)
  Sender: FDA-Public Use
  Company Number: None

PATIENT
  Age: 73 Year
  Sex: Female
  Weight: 79.3795 kg

DRUGS (1)
  1. LEVAQUIN [Suspect]
     Indication: DIVERTICULUM
     Dosage: ONE DAILY PO ; DAYS
     Route: 048
     Dates: start: 20091019, end: 20091029

REACTIONS (4)
  - ANXIETY [None]
  - DECREASED APPETITE [None]
  - FEELING ABNORMAL [None]
  - INSOMNIA [None]
